FAERS Safety Report 8888526 (Version 1)
Quarter: 2012Q4

REPORT INFORMATION
  Report Type: 
  Country: US (occurrence: US)
  Receive Date: 20121106
  Receipt Date: 20121106
  Transmission Date: 20130627
  Serious: Yes (Disabling, Other)
  Sender: FDA-Public Use
  Company Number: US-UCBSA-069991

PATIENT
  Sex: Female

DRUGS (3)
  1. KEPPRA [Suspect]
     Indication: CONVULSION
  2. LYRICA [Concomitant]
     Indication: CONVULSION
     Route: 048
  3. LAMICTAL [Concomitant]
     Indication: CONVULSION

REACTIONS (3)
  - Convulsion [Unknown]
  - Memory impairment [Unknown]
  - Impaired work ability [Unknown]
